FAERS Safety Report 8429328-5 (Version None)
Quarter: 2012Q2

REPORT INFORMATION
  Report Type: 
  Country: None (occurrence: None)
  Receive Date: 20120612
  Receipt Date: 20120601
  Transmission Date: 20120825
  Serious: Yes (Hospitalization, Other)
  Sender: FDA-Public Use
  Company Number: US-SANOFI-AVENTIS-2011SA047902

PATIENT
  Sex: Male

DRUGS (14)
  1. LIPITOR [Concomitant]
     Route: 048
  2. INDOMETHACIN [Concomitant]
  3. PLAVIX [Suspect]
     Indication: ANGIOPLASTY
     Route: 048
     Dates: start: 20080704, end: 20101230
  4. FERROUS SULFATE TAB [Concomitant]
  5. PLAVIX [Suspect]
     Indication: STENT PLACEMENT
     Route: 048
     Dates: start: 20080704, end: 20101230
  6. NITROGLYCERIN [Concomitant]
     Indication: CHEST PAIN
     Dosage: X 3
     Route: 060
  7. LISINOPRIL [Concomitant]
  8. PLAVIX [Suspect]
     Indication: CORONARY ARTERY DISEASE
     Route: 048
     Dates: start: 20080704, end: 20101230
  9. IBUPROFEN [Suspect]
     Route: 048
  10. VICODIN [Concomitant]
     Dosage: 7.5-500 AND 5-500
     Route: 048
  11. METOPROLOL TARTRATE [Concomitant]
  12. LISINOPRIL AND HYDROCHLOROTHIAZIDE [Concomitant]
  13. ASPIRIN [Suspect]
     Indication: CORONARY ARTERY DISEASE
     Route: 048
  14. TADALAFIL [Concomitant]

REACTIONS (13)
  - ANAEMIA [None]
  - PYREXIA [None]
  - GASTRIC ULCER HAEMORRHAGE [None]
  - HELICOBACTER GASTRITIS [None]
  - GASTRIC CANCER [None]
  - HAEMATEMESIS [None]
  - HAEMATOCHEZIA [None]
  - SYNCOPE [None]
  - RENAL FAILURE ACUTE [None]
  - CAROTID ARTERY STENOSIS [None]
  - HYPOTENSION [None]
  - DIZZINESS [None]
  - VISUAL IMPAIRMENT [None]
